FAERS Safety Report 24322511 (Version 1)
Quarter: 2024Q3

REPORT INFORMATION
  Report Type: Spontaneous
  Country: US (occurrence: US)
  Receive Date: 20240916
  Receipt Date: 20240916
  Transmission Date: 20241017
  Serious: No
  Sender: ALVOGEN
  Company Number: None

PATIENT

DRUGS (1)
  1. DEXTROAMPHET SACCHARAT, AMPHET ASPARTATE, DEXTROAMPHET SULFATE AND AMP [Suspect]
     Active Substance: AMPHETAMINE ASPARTATE\AMPHETAMINE SULFATE\DEXTROAMPHETAMINE SACCHARATE\DEXTROAMPHETAMINE SULFATE
     Indication: Product used for unknown indication
     Dosage: DEXTROAMP-AMPHETAMIN ?10 MG, 15 MG, 20 MG, 30 MG TAB

REACTIONS (6)
  - Disorientation [Unknown]
  - Dizziness [Unknown]
  - Diarrhoea [Unknown]
  - Therapeutic response changed [Unknown]
  - Product solubility abnormal [Unknown]
  - Product substitution issue [Unknown]
